FAERS Safety Report 12653504 (Version 1)
Quarter: 2016Q3

REPORT INFORMATION
  Report Type: Report from Study
  Country: PH (occurrence: PH)
  Receive Date: 20160815
  Receipt Date: 20160815
  Transmission Date: 20161109
  Serious: Yes (Death, Hospitalization, Other)
  Sender: FDA-Public Use
  Company Number: PH-009507513-1608PHL005538

PATIENT
  Age: 48 Year
  Sex: Male

DRUGS (1)
  1. JANUMET [Suspect]
     Active Substance: METFORMIN HYDROCHLORIDE\SITAGLIPTIN PHOSPHATE
     Indication: DIABETES MELLITUS
     Dosage: 1 DF (TABLET), BID
     Route: 048
     Dates: start: 2015, end: 201604

REACTIONS (3)
  - Cerebral thrombosis [Fatal]
  - Fall [Fatal]
  - Coma [Fatal]

NARRATIVE: CASE EVENT DATE: 20160415
